FAERS Safety Report 24048278 (Version 1)
Quarter: 2024Q3

REPORT INFORMATION
  Report Type: Spontaneous
  Country: BE (occurrence: BE)
  Receive Date: 20240704
  Receipt Date: 20240704
  Transmission Date: 20241017
  Serious: Yes (Hospitalization, Other)
  Sender: CELLTRION
  Company Number: BE-CELLTRION INC.-2024BE015739

PATIENT

DRUGS (6)
  1. TRASTUZUMAB [Suspect]
     Active Substance: TRASTUZUMAB
     Indication: Breast cancer
     Dosage: 1 DF EVERY 4 WEEKS, FIRST DOSE ADMINISTERED ON 29/06/2020. AND THEN ALSO ON 20/07/2020, 10/08/2020,
     Route: 042
     Dates: start: 20200629, end: 20200914
  2. PERTUZUMAB [Suspect]
     Active Substance: PERTUZUMAB
     Indication: Breast cancer
     Dosage: 1 DF EVERY 4 WEEKS, FIRST DOSE ADMINISTERED ON 29/06/2020. AND THEN ALSO ON 20/07/2020, 10/08/2020 A
     Route: 042
     Dates: start: 20200629, end: 20200831
  3. PACLITAXEL [Suspect]
     Active Substance: PACLITAXEL
     Indication: Breast cancer
     Dosage: 1 DF EVERY 4 WEEKS, FIRST DOSE ADMINISTERED ON 29/06/2020. AND THEN ALSO ON 20/07/2020, 10/08/2020,
     Route: 042
     Dates: start: 20200629, end: 20200914
  4. PERJETA [Suspect]
     Active Substance: PERTUZUMAB
     Indication: Breast cancer
     Dosage: 1 DF EVERY 4 WEEKS FIRST DOSE ADMINISTERED ON 29/06/2020. AND THEN ALSO ON 20/07/2020, 10/08/2020, 3
     Route: 042
     Dates: start: 20200629, end: 20200914
  5. VITAMIN D NOS [Concomitant]
     Active Substance: CHOLECALCIFEROL\ERGOCALCIFEROL
  6. DICLOFENAC [Concomitant]
     Active Substance: DICLOFENAC

REACTIONS (9)
  - Blindness [Recovered/Resolved]
  - Tachycardia [Recovered/Resolved]
  - Hypertension [Recovered/Resolved]
  - Back pain [Recovered/Resolved]
  - Hypersensitivity [Recovered/Resolved]
  - Pain [Recovered/Resolved]
  - Abdominal pain [Recovered/Resolved]
  - Nausea [Recovered/Resolved]
  - Intentional product use issue [Unknown]

NARRATIVE: CASE EVENT DATE: 20200831
